FAERS Safety Report 23537033 (Version 1)
Quarter: 2024Q1

REPORT INFORMATION
  Report Type: Spontaneous
  Country: FR (occurrence: FR)
  Receive Date: 20240219
  Receipt Date: 20240219
  Transmission Date: 20240410
  Serious: Yes (Hospitalization)
  Sender: FDA-Public Use
  Company Number: None

PATIENT
  Age: 63 Year
  Sex: Male
  Weight: 51.5 kg

DRUGS (6)
  1. CARBOPLATIN [Suspect]
     Active Substance: CARBOPLATIN
     Indication: Lung neoplasm malignant
     Dosage: 630 MILLIGRAM, SINGLE
     Route: 042
     Dates: start: 20231221, end: 20231221
  2. EMEND [Suspect]
     Active Substance: APREPITANT
     Indication: Prophylaxis
     Dosage: UNKNOWN
     Route: 048
     Dates: start: 20231221, end: 20231223
  3. ETOPOSIDE [Suspect]
     Active Substance: ETOPOSIDE
     Indication: Lung adenocarcinoma
     Dosage: 164 MILLIGRAM, CYCLICAL
     Route: 065
     Dates: start: 20231221, end: 20231223
  4. IMFINZI [Suspect]
     Active Substance: DURVALUMAB
     Indication: Lung neoplasm malignant
     Dosage: 1500 MILLIGRAM, SINGLE
     Route: 042
     Dates: start: 20231221, end: 20231221
  5. METHYLPREDNISOLONE [Concomitant]
     Active Substance: METHYLPREDNISOLONE
     Indication: Prophylaxis
     Dosage: 60 MILLIGRAM
     Route: 065
     Dates: start: 20231221
  6. ONDANSETRON [Concomitant]
     Active Substance: ONDANSETRON
     Indication: Prophylaxis
     Dosage: UNKNOWN
     Route: 065
     Dates: start: 20231221

REACTIONS (1)
  - Interstitial lung disease [Recovering/Resolving]

NARRATIVE: CASE EVENT DATE: 20231228
